FAERS Safety Report 9507119 (Version 1)
Quarter: 2013Q1

REPORT INFORMATION
  Report Type: Spontaneous
  Country: US (occurrence: None)
  Receive Date: 20130305
  Receipt Date: 20130305
  Transmission Date: 20140127
  Serious: Yes (Other)
  Sender: FDA-Public Use
  Company Number: 163-21880-12050571

PATIENT
  Age: 76 Year
  Sex: Male
  Weight: 117.94 kg

DRUGS (23)
  1. REVLIMID (LENALIDOMIDE) (25 MILLIGRAM,CAPSULES) [Suspect]
     Indication: PLASMA CELL MYELOMA
     Route: 048
     Dates: start: 20110211, end: 2012
  2. DEXAMETHASONE (DEXAMETHASONE) [Concomitant]
  3. AREDIA (PAMIDRONAE DISODIUM) [Concomitant]
  4. POTASSIUM CHLORIDE (POTASSIUM CHLORIDE) [Concomitant]
  5. HYDROCHLOROTHIAZIDE (HYDROCHLOROTHIAZIDE) [Concomitant]
  6. FOLIC (HEPAGRISEVIT FORTE-N TABLET) [Concomitant]
  7. ALPHA LIPOIC ACID (THIOCTIC ACID) [Concomitant]
  8. MVI (MVI) [Concomitant]
  9. FOLIC ACID (FOLIC ACID) [Concomitant]
  10. FISH OIL (FISH OIL) [Concomitant]
  11. BUFFERIN (FUFFERIN) [Concomitant]
  12. PEPCID (FAMOTIDINE) [Concomitant]
  13. CITALOPRAM HBR (CITALOPRAM HYDROBROMIDE) [Concomitant]
  14. FAMOTIDINE (FAMOTIDINE) [Concomitant]
  15. OMEGA 3 (FISH OIL) [Concomitant]
  16. XOPENEX HFA (LEVOSALBUTAMOL TARTRATE) [Concomitant]
  17. VITAMIN D (ERGOCALCIFEROL) [Concomitant]
  18. AVELOC (MOXIFLOXAVIN HYDROCHLORIDE) [Concomitant]
  19. ALLOPURINOL [Concomitant]
  20. ACYCLOVIR (ACICLOVIR) (ACICLOVIR) [Concomitant]
  21. LEVAQUIN (LEVOFLOXACIN) [Concomitant]
  22. FLONASE (FLUTIASONE PROPIONATE) [Concomitant]
  23. REFRESH (TEARS PLUS) [Concomitant]

REACTIONS (3)
  - Platelet count decreased [None]
  - Plasma cell myeloma [None]
  - Neuropathy peripheral [None]
